FAERS Safety Report 4733808-3 (Version None)
Quarter: 2005Q3

REPORT INFORMATION
  Report Type: 
  Country: None (occurrence: None)
  Receive Date: 20050729
  Receipt Date: 20050708
  Transmission Date: 20060218
  Serious: Yes (Life-Threatening)
  Sender: FDA-Public Use
  Company Number: JP_050707044

PATIENT
  Age: 65 Year
  Sex: Female

DRUGS (1)
  1. ZYPREXA [Suspect]
     Indication: SCHIZOPHRENIA
     Dosage: 20 MG DAY
     Dates: start: 20050326, end: 20050623

REACTIONS (4)
  - COMA [None]
  - ENCEPHALITIS [None]
  - MENINGITIS [None]
  - NEUROLEPTIC MALIGNANT SYNDROME [None]
